FAERS Safety Report 12246787 (Version 6)
Quarter: 2016Q2

REPORT INFORMATION
  Report Type: Report from Study
  Country: US (occurrence: US)
  Receive Date: 20160407
  Receipt Date: 20160629
  Transmission Date: 20160815
  Serious: Yes (Hospitalization)
  Sender: FDA-Public Use
  Company Number: US-BIOGEN-2016BI00214973

PATIENT
  Sex: Female

DRUGS (2)
  1. TECFIDERA [Suspect]
     Active Substance: DIMETHYL FUMARATE
     Route: 048
     Dates: end: 20160315
  2. TECFIDERA [Suspect]
     Active Substance: DIMETHYL FUMARATE
     Indication: MULTIPLE SCLEROSIS
     Route: 048
     Dates: start: 20130618, end: 20151006

REACTIONS (16)
  - Respiratory disorder [Recovered/Resolved]
  - Band sensation [Recovered/Resolved]
  - Medical device site scar [Unknown]
  - Nuclear magnetic resonance imaging abnormal [Unknown]
  - Cardiac arrest [Unknown]
  - Coronary arterial stent insertion [Not Recovered/Not Resolved]
  - Viral infection [Unknown]
  - Pericardial effusion [Unknown]
  - Migraine [Unknown]
  - Respiratory arrest [Unknown]
  - Pleural effusion [Unknown]
  - Hypoaesthesia [Not Recovered/Not Resolved]
  - Cardiac disorder [Unknown]
  - Headache [Not Recovered/Not Resolved]
  - Infection [Unknown]
  - Nuclear magnetic resonance imaging brain abnormal [Unknown]

NARRATIVE: CASE EVENT DATE: 2015
